FAERS Safety Report 8848648 (Version 2)
Quarter: 2013Q1

REPORT INFORMATION
  Report Type: Spontaneous
  Country: US (occurrence: US)
  Receive Date: 20121018
  Receipt Date: 20130326
  Transmission Date: 20140127
  Serious: Yes (Other)
  Sender: FDA-Public Use
  Company Number: US-US-EMD SERONO, INC.-7167347

PATIENT
  Age: 69 Year
  Sex: Male
  Weight: 73 kg

DRUGS (8)
  1. REBIF [Suspect]
     Indication: PROGRESSIVE MULTIPLE SCLEROSIS
     Route: 058
     Dates: start: 20121008
  2. REBIF [Suspect]
     Route: 058
  3. DIABETIC PILL [Concomitant]
     Indication: DIABETES MELLITUS
     Route: 048
  4. ANTIBIOTICS [Concomitant]
     Indication: BLADDER CATHETERISATION
     Dosage: LOW DOSE
  5. COUMADIN [Concomitant]
     Indication: ATRIAL FIBRILLATION
  6. COUMADIN [Concomitant]
     Indication: CARDIAC ABLATION
  7. TYLENOL [Concomitant]
     Indication: PREMEDICATION
  8. BACLOFEN [Concomitant]
     Indication: PROGRESSIVE MULTIPLE SCLEROSIS

REACTIONS (2)
  - Blood glucose increased [Recovered/Resolved]
  - Transurethral prostatectomy [Not Recovered/Not Resolved]
